FAERS Safety Report 23356427 (Version 2)
Quarter: 2024Q1

REPORT INFORMATION
  Report Type: Spontaneous
  Country: US (occurrence: US)
  Receive Date: 20240102
  Receipt Date: 20240105
  Transmission Date: 20240410
  Serious: Yes (Other)
  Sender: FDA-Public Use
  Company Number: US-MLMSERVICE-20231215-4729440-2

PATIENT
  Age: 70 Year
  Sex: Female

DRUGS (1)
  1. FLUOROURACIL [Suspect]
     Active Substance: FLUOROURACIL
     Indication: Actinic keratosis
     Dosage: 5-FU APPLIED UNDER AN UNNA BOOT, CHANGED WEEKLY) FOR FOUR WEEKS.
     Route: 061

REACTIONS (2)
  - Inflammatory pain [Unknown]
  - Keratoacanthoma [Recovered/Resolved]
